FAERS Safety Report 16710752 (Version 1)
Quarter: 2019Q3

REPORT INFORMATION
  Report Type: Spontaneous
  Country: US (occurrence: US)
  Receive Date: 20190701
  Receipt Date: 20190701
  Transmission Date: 20191004
  Serious: No
  Sender: FDA-Public Use
  Company Number: None

PATIENT
  Age: 66 Year
  Sex: Male
  Weight: 83.91 kg

DRUGS (1)
  1. TREMFYA [Suspect]
     Active Substance: GUSELKUMAB
     Indication: PSORIASIS
     Dosage: INJECT 100MG  SUBCUTANEOUSLY ON WEEK 0 AND WEEK 4 AS DIRECTED
     Route: 058
     Dates: start: 201902

REACTIONS (1)
  - Chronic obstructive pulmonary disease [None]
